FAERS Safety Report 7783343-3 (Version None)
Quarter: 2011Q3

REPORT INFORMATION
  Report Type: 
  Country: None (occurrence: None)
  Receive Date: 20110928
  Receipt Date: 20110920
  Transmission Date: 20111222
  Serious: Yes (Other)
  Sender: FDA-Public Use
  Company Number: US-AMGEN-USASP2011040311

PATIENT
  Age: 36 Year
  Sex: Female

DRUGS (6)
  1. METFORMIN HCL [Concomitant]
     Dosage: UNK
  2. ENBREL [Suspect]
     Indication: RHEUMATOID ARTHRITIS
     Dosage: 50 MG, QWK
     Dates: start: 20090501
  3. WELLBUTRIN [Concomitant]
     Dosage: UNK
  4. VITAMINS                           /00067501/ [Concomitant]
     Dosage: UNK
  5. SINGULAIR [Concomitant]
     Dosage: 10 MG, QD
     Route: 048
  6. ZYRTEC [Concomitant]
     Dosage: UNK UNK, PRN

REACTIONS (3)
  - MATERNAL EXPOSURE DURING PREGNANCY [None]
  - ANAEMIA OF PREGNANCY [None]
  - RHEUMATOID ARTHRITIS [None]
